FAERS Safety Report 20033831 (Version 1)
Quarter: 2021Q4

REPORT INFORMATION
  Report Type: Spontaneous
  Country: RU (occurrence: None)
  Receive Date: 20211104
  Receipt Date: 20211104
  Transmission Date: 20220303
  Serious: Yes (Other)
  Sender: FDA-Public Use
  Company Number: 2021A791821

PATIENT
  Sex: Female

DRUGS (1)
  1. SYMBICORT [Suspect]
     Active Substance: BUDESONIDE\FORMOTEROL FUMARATE DIHYDRATE
     Indication: Asthma
     Dosage: 160/4.5 MCG, TWICE PER DAY (THE QUANTITY OF THE INHALES WAS UNKNOWN)
     Route: 055

REACTIONS (3)
  - Asthma [Unknown]
  - Bronchitis [Unknown]
  - Rales [Unknown]
